FAERS Safety Report 15447751 (Version 3)
Quarter: 2020Q1

REPORT INFORMATION
  Report Type: Spontaneous
  Country: US (occurrence: US)
  Receive Date: 20180928
  Receipt Date: 20200323
  Transmission Date: 20200409
  Serious: No
  Sender: FDA-Public Use
  Company Number: US-AMGEN-USASP2018119508

PATIENT
  Age: 62 Year
  Sex: Female

DRUGS (4)
  1. SYNTHROID [Concomitant]
     Active Substance: LEVOTHYROXINE SODIUM
     Dosage: UNK
  2. PROLIA [Suspect]
     Active Substance: DENOSUMAB
     Indication: OSTEOPOROSIS POSTMENOPAUSAL
     Dosage: 60 MG, UNK
     Route: 065
     Dates: start: 20160123
  3. ACTONEL [Concomitant]
     Active Substance: RISEDRONATE SODIUM
  4. FOSAMAX [Concomitant]
     Active Substance: ALENDRONATE SODIUM
     Dosage: UNK
     Dates: start: 2018

REACTIONS (6)
  - Toothache [Not Recovered/Not Resolved]
  - Inappropriate schedule of product administration [Unknown]
  - Pain in jaw [Recovered/Resolved]
  - Sleep disorder due to a general medical condition [Unknown]
  - Tooth fracture [Unknown]
  - Tooth repair [Unknown]

NARRATIVE: CASE EVENT DATE: 2018
